FAERS Safety Report 23264317 (Version 5)
Quarter: 2024Q2

REPORT INFORMATION
  Report Type: Report from Study
  Country: BE (occurrence: BE)
  Receive Date: 20231205
  Receipt Date: 20240613
  Transmission Date: 20240716
  Serious: Yes (Hospitalization)
  Sender: FDA-Public Use
  Company Number: BE-ROCHE-2882515

PATIENT
  Age: 73 Year
  Sex: Female
  Weight: 65.9 kg

DRUGS (34)
  1. CARBOPLATIN [Suspect]
     Active Substance: CARBOPLATIN
     Indication: Small cell lung cancer extensive stage
     Dosage: 375 MG
     Route: 065
     Dates: start: 20210715
  2. CARBOPLATIN [Suspect]
     Active Substance: CARBOPLATIN
     Dosage: 351 MG
     Route: 065
     Dates: start: 20210804
  3. ATEZOLIZUMAB [Suspect]
     Active Substance: ATEZOLIZUMAB
     Indication: Small cell lung cancer extensive stage
     Dosage: 1200 MG (RECEIVED BEFORE SIGNING THE INFORMED CONSENT)
     Route: 042
     Dates: start: 20210715
  4. ATEZOLIZUMAB [Suspect]
     Active Substance: ATEZOLIZUMAB
     Dosage: 1200 MG (VISIT 1)
     Route: 042
     Dates: start: 20210804
  5. ETOPOSIDE [Suspect]
     Active Substance: ETOPOSIDE
     Indication: Small cell lung cancer extensive stage
     Dosage: 194 MG
     Route: 042
     Dates: start: 20210715
  6. ETOPOSIDE [Suspect]
     Active Substance: ETOPOSIDE
     Dosage: 196 MG
     Route: 042
     Dates: start: 20210804
  7. CHOLECALCIFEROL [Concomitant]
     Active Substance: CHOLECALCIFEROL
     Dosage: UNK, DAILY
     Dates: start: 20210716
  8. ALIZAPRIDE HYDROCHLORIDE [Concomitant]
     Active Substance: ALIZAPRIDE HYDROCHLORIDE
     Dosage: UNK, 1X/DAY
     Dates: start: 20210717, end: 20210717
  9. POLYETHYLENE GLYCOL 3350\POTASSIUM CHLORIDE\SODIUM BICARBONATE\SODIUM [Concomitant]
     Active Substance: POLYETHYLENE GLYCOL 3350\POTASSIUM CHLORIDE\SODIUM BICARBONATE\SODIUM CHLORIDE
     Dosage: UNK, 1X/DAY
  10. BECLOMETHASONE DIPROPIONATE\FORMOTEROL FUMARATE [Concomitant]
     Active Substance: BECLOMETHASONE DIPROPIONATE\FORMOTEROL FUMARATE
     Dosage: UNK, 2X/DAY
     Dates: start: 20210715
  11. LEVOFLOXACIN [Concomitant]
     Active Substance: LEVOFLOXACIN
     Dosage: UNK, 1X/DAY
     Dates: start: 20210723, end: 20210726
  12. MAGNESIUM [Concomitant]
     Active Substance: MAGNESIUM
     Dosage: UNK, 1X/DAY
     Dates: start: 20210716, end: 20210925
  13. POTASSIUM CHLORIDE [Concomitant]
     Active Substance: POTASSIUM CHLORIDE
     Dosage: UNK, 1X/DAY
     Dates: start: 20210729, end: 20210730
  14. AMOCLANE [Concomitant]
     Dosage: UNK, 1X/DAY
     Dates: start: 20210728
  15. ULTRA K [Concomitant]
     Dosage: UNK, 1X/DAY
     Dates: start: 20210728
  16. SODIUM CHLORIDE [Concomitant]
     Active Substance: SODIUM CHLORIDE
     Dosage: UNK, 1X/DAY
     Dates: start: 20210729, end: 20210730
  17. NEULASTA [Concomitant]
     Active Substance: PEGFILGRASTIM
     Dosage: UNK
     Dates: start: 20210719, end: 20210917
  18. CEFTAZIDIME [Concomitant]
     Active Substance: CEFTAZIDIME
     Dosage: UNK, 1X/DAY
     Dates: start: 20210726, end: 20210728
  19. PLASMALYTE A [Concomitant]
     Dosage: UNK, 1X/DAY
     Dates: start: 20210726, end: 20210727
  20. BISOPROLOL [Concomitant]
     Active Substance: BISOPROLOL\BISOPROLOL FUMARATE
     Dosage: UNK, 1X/DAY
  21. AKYNZEO (NETUPITANT\PALONOSETRON) [Concomitant]
     Active Substance: NETUPITANT\PALONOSETRON
     Dosage: UNK, MONTHLY
     Dates: start: 20210715, end: 20210915
  22. PRAVASTATIN [Concomitant]
     Active Substance: PRAVASTATIN
     Dosage: UNK, 1X/DAY
  23. ASPIRIN [Concomitant]
     Active Substance: ASPIRIN
     Dosage: UNK, 1X/DAY
     Dates: start: 20210927, end: 20210927
  24. PERINDOPRIL [Concomitant]
     Active Substance: PERINDOPRIL
     Dosage: UNK, 1X/DAY
  25. BILASTINE [Concomitant]
     Active Substance: BILASTINE
     Indication: Prophylaxis
     Dosage: UNK, DAILY
     Dates: start: 202110, end: 202306
  26. 3M CAVILON ANTIFUNGAL [Concomitant]
     Active Substance: MICONAZOLE NITRATE
     Dosage: UNK UNK, DAILY
     Dates: start: 20210916, end: 202109
  27. AVELOX [Concomitant]
     Active Substance: MOXIFLOXACIN HYDROCHLORIDE
     Dosage: UNK, DAILY
     Dates: start: 20211117, end: 20211121
  28. ALDACTONE [Concomitant]
     Active Substance: SPIRONOLACTONE
     Dosage: UNK, 1X/DAY
     Dates: start: 20230330
  29. ENALAPRIL [Concomitant]
     Active Substance: ENALAPRIL
     Dosage: UNK, 2X/DAY
     Dates: start: 20230330
  30. CARVEDILOL [Concomitant]
     Active Substance: CARVEDILOL
     Dosage: UNK, 2X/DAY
     Dates: start: 20230330
  31. ZOCOR [Concomitant]
     Active Substance: SIMVASTATIN
     Dosage: UNK, 1X/DAY
     Dates: start: 20210804
  32. FUROSEMIDE [Concomitant]
     Active Substance: FUROSEMIDE
     Dosage: UNK, DAILY
  33. MEDROL [Concomitant]
     Active Substance: METHYLPREDNISOLONE
     Dosage: UNK
     Dates: start: 20210715
  34. CARBOPLATIN [Concomitant]
     Active Substance: CARBOPLATIN

REACTIONS (8)
  - Inflammation [Recovered/Resolved]
  - Decreased appetite [Not Recovered/Not Resolved]
  - Hypothyroidism [Recovered/Resolved]
  - C-reactive protein increased [Recovered/Resolved]
  - Oedema peripheral [Recovered/Resolved]
  - Haematoma [Recovered/Resolved]
  - Fall [Recovered/Resolved]
  - Diarrhoea [Recovered/Resolved]

NARRATIVE: CASE EVENT DATE: 20210717
